FAERS Safety Report 11409884 (Version 1)
Quarter: 2015Q3

REPORT INFORMATION
  Report Type: Spontaneous
  Country: US (occurrence: US)
  Receive Date: 20150824
  Receipt Date: 20150824
  Transmission Date: 20151125
  Serious: Yes (Death)
  Sender: FDA-Public Use
  Company Number: US-ASTELLAS-2015US029640

PATIENT
  Age: 74 Year
  Sex: Male

DRUGS (1)
  1. PROGRAF [Suspect]
     Active Substance: TACROLIMUS\TACROLIMUS ANHYDROUS
     Indication: TRANSPLANT
     Dosage: 1 MG, ONCE DAILY (EVERY MORNING)
     Route: 048
     Dates: start: 20110617, end: 20150816

REACTIONS (1)
  - Death [Fatal]

NARRATIVE: CASE EVENT DATE: 20150816
